FAERS Safety Report 5631563-6 (Version None)
Quarter: 2008Q1

REPORT INFORMATION
  Report Type: 
  Country: None (occurrence: None)
  Receive Date: 20080212
  Receipt Date: 20080128
  Transmission Date: 20080703
  Serious: Yes (Death, Hospitalization)
  Sender: FDA-Public Use
  Company Number: 08-181

PATIENT
  Sex: Male
  Weight: 107.0489 kg

DRUGS (6)
  1. FAZACLO ODT [Suspect]
     Indication: SCHIZOPHRENIA
     Dosage: 500 MG PO DAILY
     Route: 048
     Dates: start: 20071108, end: 20071209
  2. EFFEXOR [Concomitant]
  3. M.V.I. [Concomitant]
  4. DEPAKOTE ER [Concomitant]
  5. ALBUTEROL [Concomitant]
  6. ATROVENT [Concomitant]

REACTIONS (1)
  - LUNG NEOPLASM MALIGNANT [None]
